FAERS Safety Report 20657112 (Version 9)
Quarter: 2024Q1

REPORT INFORMATION
  Report Type: Spontaneous
  Country: GB (occurrence: GB)
  Receive Date: 20220331
  Receipt Date: 20240307
  Transmission Date: 20240409
  Serious: Yes (Death, Other)
  Sender: FDA-Public Use
  Company Number: None

PATIENT
  Age: 44 Year
  Sex: Female

DRUGS (6)
  1. PREGABALIN [Suspect]
     Active Substance: PREGABALIN
     Indication: Product used for unknown indication
     Dosage: 3 DOSAGE FORM 1 TOTAL (TABLET)
     Route: 050
     Dates: end: 20161015
  2. MORPHINE SULFATE [Suspect]
     Active Substance: MORPHINE SULFATE
     Indication: Product used for unknown indication
     Dosage: UNK, (6 -7) TABLETS
     Route: 048
     Dates: start: 20161014
  3. ACETAMINOPHEN [Suspect]
     Active Substance: ACETAMINOPHEN
     Indication: Product used for unknown indication
     Dosage: UNK
     Route: 065
  4. ZOPICLONE [Suspect]
     Active Substance: ZOPICLONE
     Indication: Sleep disorder
     Dosage: 14 DOSAGE FORM, 14 TABLETS FOR 2 WEEKS
     Route: 050
  5. COCODAMOL [Suspect]
     Active Substance: ACETAMINOPHEN\CODEINE PHOSPHATE
     Indication: Pain
     Dosage: 28 DOSAGE FORM QD, DAILY ONCE ( (112 TABLET, FOR TWO WEEKS)
     Route: 050
  6. COCODAMOL [Suspect]
     Active Substance: ACETAMINOPHEN\CODEINE PHOSPHATE
     Indication: Analgesic therapy

REACTIONS (10)
  - Drug diversion [Fatal]
  - Dysarthria [Fatal]
  - Eye pain [Fatal]
  - Gait disturbance [Fatal]
  - Vision blurred [Fatal]
  - Drug abuse [Fatal]
  - Intentional product misuse [Fatal]
  - Toxicity to various agents [Fatal]
  - Accidental overdose [Fatal]
  - Prescription drug used without a prescription [Fatal]

NARRATIVE: CASE EVENT DATE: 20161001
